FAERS Safety Report 7434382-3 (Version None)
Quarter: 2011Q2

REPORT INFORMATION
  Report Type: 
  Country: None (occurrence: None)
  Receive Date: 20110425
  Receipt Date: 20060124
  Transmission Date: 20111010
  Serious: Yes (Hospitalization)
  Sender: FDA-Public Use
  Company Number: 2006PV007535

PATIENT
  Age: 70 Year
  Sex: Female
  Weight: 72.5755 kg

DRUGS (8)
  1. LEVOTHROID [Concomitant]
  2. LASIX [Concomitant]
  3. ASPIRIN [Concomitant]
  4. ASPIRIN [Suspect]
     Indication: PRODUCT USED FOR UNKNOWN INDICATION
     Dosage: 500 MG;TID
     Dates: end: 20050101
  5. BYETTA [Suspect]
     Indication: TYPE 2 DIABETES MELLITUS
     Dosage: 10 MCG;BID;SC, 5 MCG;BID;SC
     Route: 058
     Dates: start: 20050605, end: 20050619
  6. BYETTA [Suspect]
     Indication: TYPE 2 DIABETES MELLITUS
     Dosage: 10 MCG;BID;SC, 5 MCG;BID;SC
     Route: 058
     Dates: start: 20050620
  7. NEURONTIN [Concomitant]
  8. HUMULIN R [Concomitant]

REACTIONS (6)
  - WEIGHT DECREASED [None]
  - BLOOD GLUCOSE INCREASED [None]
  - INJECTION SITE PRURITUS [None]
  - STRESS [None]
  - RECTAL HAEMORRHAGE [None]
  - HYPOPHAGIA [None]
